FAERS Safety Report 15041572 (Version 2)
Quarter: 2018Q2

REPORT INFORMATION
  Report Type: Report from Study
  Country: IT (occurrence: IT)
  Receive Date: 20180621
  Receipt Date: 20180629
  Transmission Date: 20180711
  Serious: Yes (Other)
  Sender: FDA-Public Use
  Company Number: IT-ASPEN-GLO2018IT005773

PATIENT
  Sex: Female

DRUGS (4)
  1. BUSULFAN. [Suspect]
     Active Substance: BUSULFAN
     Indication: PRIMITIVE NEUROECTODERMAL TUMOUR
     Dosage: 0.56 G/M2 CYCLICAL
     Route: 065
  2. CYCLOPHOSPHAMIDE. [Concomitant]
     Active Substance: CYCLOPHOSPHAMIDE
     Indication: PRIMITIVE NEUROECTODERMAL TUMOUR
     Dosage: CYCLICAL 10.5 G/M2
     Route: 065
  3. IFOSFAMIDE. [Suspect]
     Active Substance: IFOSFAMIDE
     Indication: PRIMITIVE NEUROECTODERMAL TUMOUR
     Dosage: CYCLICAL 0.39 G/M2
     Route: 065
  4. MELPHALAN. [Suspect]
     Active Substance: MELPHALAN
     Indication: PRIMITIVE NEUROECTODERMAL TUMOUR
     Dosage: 0.14 G/M2 CYCLICAL
     Route: 065

REACTIONS (4)
  - Off label use [Unknown]
  - Infertility female [Unknown]
  - Amenorrhoea [Unknown]
  - Ovarian cyst [Unknown]
